FAERS Safety Report 5961420-7 (Version None)
Quarter: 2008Q4

REPORT INFORMATION
  Report Type: 
  Country: None (occurrence: None)
  Receive Date: 20081121
  Receipt Date: 20081021
  Transmission Date: 20090506
  Serious: No
  Sender: FDA-Public Use
  Company Number: US-BAYER-200836682NA

PATIENT
  Age: 48 Year
  Sex: Female
  Weight: 50 kg

DRUGS (1)
  1. MIRENA [Suspect]
     Indication: MENORRHAGIA
     Route: 015
     Dates: start: 20081003

REACTIONS (4)
  - HEADACHE [None]
  - POSTNASAL DRIP [None]
  - SENSATION OF FOREIGN BODY [None]
  - SINUSITIS [None]
